FAERS Safety Report 12123874 (Version 3)
Quarter: 2016Q2

REPORT INFORMATION
  Report Type: Report from Study
  Country: US (occurrence: US)
  Receive Date: 20160228
  Receipt Date: 20160611
  Transmission Date: 20160815
  Serious: No
  Sender: FDA-Public Use
  Company Number: PHEH2016US004722

PATIENT
  Age: 9 Year
  Sex: Male

DRUGS (5)
  1. AFINITOR [Suspect]
     Active Substance: EVEROLIMUS
     Indication: GANGLIOGLIOMA
     Dosage: 2.5 MG, QD
     Route: 048
     Dates: start: 20160222, end: 20160307
  2. L-LYSINE//LYSINE [Concomitant]
     Indication: STOMATITIS
     Dosage: 500 MG, QD
     Route: 048
     Dates: start: 20160405
  3. VITAMIN D [Concomitant]
     Active Substance: CHOLECALCIFEROL
     Indication: PRODUCT USED FOR UNKNOWN INDICATION
     Dosage: 4 VIT D GUMMIES , QD
     Route: 048
     Dates: start: 20160405
  4. AFINITOR [Suspect]
     Active Substance: EVEROLIMUS
     Dosage: 2.5 MG, MONDAY, WEDNESDAY, FRIDAY
     Dates: start: 20160405
  5. METHYLPHENIDATE. [Concomitant]
     Active Substance: METHYLPHENIDATE
     Indication: PRODUCT USED FOR UNKNOWN INDICATION
     Route: 065

REACTIONS (6)
  - Vomiting [Unknown]
  - Anxiety [Unknown]
  - Feeding disorder [Recovering/Resolving]
  - Swelling face [Unknown]
  - Weight decreased [Unknown]
  - Stomatitis [Recovering/Resolving]

NARRATIVE: CASE EVENT DATE: 20160224
